FAERS Safety Report 15899884 (Version 1)
Quarter: 2019Q1

REPORT INFORMATION
  Report Type: Spontaneous
  Country: IT (occurrence: IT)
  Receive Date: 20190201
  Receipt Date: 20190201
  Transmission Date: 20190417
  Serious: Yes (Hospitalization)
  Sender: FDA-Public Use
  Company Number: IT-TEVA-2019-IT-1005995

PATIENT
  Age: 3 Year
  Sex: Male

DRUGS (6)
  1. HOLOXAN [Suspect]
     Active Substance: IFOSFAMIDE
     Indication: BRAIN NEOPLASM
     Dosage: 2 GRAM DAILY;
     Route: 042
     Dates: start: 20180922, end: 20180923
  2. ETOPOSIDE TEVA [Suspect]
     Active Substance: ETOPOSIDE
     Indication: BRAIN NEOPLASM
     Dosage: 100 MILLIGRAM DAILY;
     Route: 042
     Dates: start: 20180922, end: 20180923
  3. ZOFRAN [Concomitant]
     Active Substance: ONDANSETRON HYDROCHLORIDE
  4. LACTULOSE. [Concomitant]
     Active Substance: LACTULOSE
  5. RANITIDINE. [Concomitant]
     Active Substance: RANITIDINE
  6. CARBOPLATINO TEVA [Suspect]
     Active Substance: CARBOPLATIN
     Indication: BRAIN NEOPLASM
     Dosage: 500 MILLIGRAM DAILY;
     Route: 042
     Dates: start: 20180921, end: 20180921

REACTIONS (1)
  - Febrile bone marrow aplasia [Recovered/Resolved]

NARRATIVE: CASE EVENT DATE: 20180928
